FAERS Safety Report 15760362 (Version 1)
Quarter: 2018Q4

REPORT INFORMATION
  Report Type: Spontaneous
  Country: US (occurrence: US)
  Receive Date: 20181226
  Receipt Date: 20181226
  Transmission Date: 20190205
  Serious: Yes (Hospitalization)
  Sender: FDA-Public Use
  Company Number: US-ELI_LILLY_AND_COMPANY-US201812008422

PATIENT
  Age: 36 Year
  Sex: Male

DRUGS (2)
  1. HUMALOG [Suspect]
     Active Substance: INSULIN LISPRO
     Indication: TYPE 2 DIABETES MELLITUS
     Dosage: 20 U, UNKNOWN, 15-20 UNITS EACH MEAL
     Route: 058
     Dates: start: 201706
  2. HUMALOG [Suspect]
     Active Substance: INSULIN LISPRO
     Indication: TYPE 2 DIABETES MELLITUS
     Dosage: 20 U, UNKNOWN
     Route: 058
     Dates: start: 201612

REACTIONS (7)
  - Product dose omission [Not Recovered/Not Resolved]
  - Postoperative wound infection [Unknown]
  - Wound haemorrhage [Unknown]
  - Nausea [Not Recovered/Not Resolved]
  - Wound [Unknown]
  - Blood glucose increased [Not Recovered/Not Resolved]
  - Malaise [Not Recovered/Not Resolved]

NARRATIVE: CASE EVENT DATE: 20181217
